FAERS Safety Report 21546573 (Version 3)
Quarter: 2022Q4

REPORT INFORMATION
  Report Type: Spontaneous
  Country: US (occurrence: None)
  Receive Date: 20221103
  Receipt Date: 20221209
  Transmission Date: 20230113
  Serious: Yes (Life-Threatening, Hospitalization, Other)
  Sender: FDA-Public Use
  Company Number: 2022A358908

PATIENT
  Age: 702 Month
  Sex: Male
  Weight: 108.9 kg

DRUGS (4)
  1. BUDESONIDE\FORMOTEROL\GLYCOPYRRONIUM [Suspect]
     Active Substance: BUDESONIDE\FORMOTEROL\GLYCOPYRRONIUM
     Indication: Chronic obstructive pulmonary disease
     Dosage: 2 PUFFS TWICE A DAY
     Route: 055
  2. SYMBICORT [Suspect]
     Active Substance: BUDESONIDE\FORMOTEROL FUMARATE DIHYDRATE
     Indication: Chronic obstructive pulmonary disease
     Dosage: 1 PUFF TWO TIMES A DAY
     Route: 055
     Dates: start: 2019
  3. HYDRALAZINE [Suspect]
     Active Substance: HYDRALAZINE HYDROCHLORIDE
     Route: 065
  4. SPIRIVA [Concomitant]
     Active Substance: TIOTROPIUM BROMIDE MONOHYDRATE
     Route: 065
     Dates: start: 2019

REACTIONS (11)
  - COVID-19 [Unknown]
  - Coma [Recovered/Resolved]
  - Pulmonary oedema [Unknown]
  - Vasculitis [Unknown]
  - Pulmonary haemorrhage [Unknown]
  - Condition aggravated [Unknown]
  - Renal haemorrhage [Unknown]
  - Renal impairment [Unknown]
  - Lung disorder [Unknown]
  - Autoimmune disorder [Unknown]
  - Device malfunction [Unknown]

NARRATIVE: CASE EVENT DATE: 20191201
